FAERS Safety Report 5072528-5 (Version None)
Quarter: 2006Q3

REPORT INFORMATION
  Report Type: 
  Country: None (occurrence: None)
  Receive Date: 20060801
  Receipt Date: 20060724
  Transmission Date: 20061208
  Serious: Yes (Death, Other)
  Sender: FDA-Public Use
  Company Number: US200604002318

PATIENT
  Sex: Male
  Weight: 95.2 kg

DRUGS (1)
  1. ZYPREXA [Suspect]
     Dosage: 2.5 MG
     Dates: start: 20010401, end: 20030401

REACTIONS (2)
  - DIABETES MELLITUS [None]
  - PANCREATITIS [None]
